APPROVED DRUG PRODUCT: LITHIUM CARBONATE
Active Ingredient: LITHIUM CARBONATE
Strength: 300MG
Dosage Form/Route: CAPSULE;ORAL
Application: A070407 | Product #001
Applicant: WATSON LABORATORIES INC
Approved: Mar 19, 1987 | RLD: No | RS: No | Type: DISCN